FAERS Safety Report 6922875-4 (Version None)
Quarter: 2010Q3

REPORT INFORMATION
  Report Type: 
  Country: None (occurrence: None)
  Receive Date: 20100811
  Receipt Date: 20100802
  Transmission Date: 20110219
  Serious: Yes (Other)
  Sender: FDA-Public Use
  Company Number: 2010SP042195

PATIENT
  Sex: Male

DRUGS (2)
  1. PEG-INTRON [Suspect]
     Indication: HEPATITIS C
     Dosage: SC
     Route: 058
  2. RIBAVIRIN [Suspect]
     Indication: HEPATITIS C
     Dosage: PO
     Route: 048

REACTIONS (7)
  - DEPRESSION [None]
  - FATIGUE [None]
  - INSOMNIA [None]
  - MUSCLE ATROPHY [None]
  - PAIN IN EXTREMITY [None]
  - THIRST [None]
  - WEIGHT DECREASED [None]
